FAERS Safety Report 21409304 (Version 2)
Quarter: 2022Q4

REPORT INFORMATION
  Report Type: Spontaneous
  Country: US (occurrence: US)
  Receive Date: 20221004
  Receipt Date: 20221216
  Transmission Date: 20230112
  Serious: No
  Sender: FDA-Public Use
  Company Number: US-BAUSCHBL-2022BNL000839

PATIENT
  Sex: Female

DRUGS (3)
  1. ALAWAY PRESERVATIVE FREE [Suspect]
     Active Substance: KETOTIFEN FUMARATE
     Indication: Product used for unknown indication
     Dosage: USES AS STATED ON THE LABEL
     Route: 047
  2. ALAWAY PRESERVATIVE FREE [Suspect]
     Active Substance: KETOTIFEN FUMARATE
     Dosage: ONLY IN THE RIGHT EYE
     Route: 047
  3. THERATEARS [Concomitant]
     Active Substance: CARBOXYMETHYLCELLULOSE SODIUM
     Indication: Dry eye

REACTIONS (5)
  - Nasal congestion [Unknown]
  - Rhinorrhoea [Unknown]
  - Rhinalgia [Unknown]
  - Inappropriate schedule of product administration [Unknown]
  - Product quality issue [Unknown]

NARRATIVE: CASE EVENT DATE: 20220929
